FAERS Safety Report 6505975-2 (Version None)
Quarter: 2009Q4

REPORT INFORMATION
  Report Type: 
  Country: None (occurrence: None)
  Receive Date: 20091217
  Receipt Date: 20091217
  Transmission Date: 20100525
  Serious: Yes (Hospitalization)
  Sender: FDA-Public Use
  Company Number: None

PATIENT
  Age: 33 Year
  Sex: Female
  Weight: 101 kg

DRUGS (2)
  1. WARFARIN SODIUM [Suspect]
     Indication: THROMBOSIS
     Dosage: 3MG QD PO
     Route: 048
     Dates: start: 20090407, end: 20090601
  2. XELODA [Suspect]
     Indication: BREAST CANCER
     Dosage: 1,000MG BID PO
     Route: 048
     Dates: start: 20090216, end: 20090601

REACTIONS (3)
  - HAEMATOMA [None]
  - ONYCHOLYSIS [None]
  - PARONYCHIA [None]
